FAERS Safety Report 8030654-2 (Version None)
Quarter: 2012Q1

REPORT INFORMATION
  Report Type: 
  Country: None (occurrence: None)
  Receive Date: 20120109
  Receipt Date: 20120102
  Transmission Date: 20120608
  Serious: Yes (Other)
  Sender: FDA-Public Use
  Company Number: PHHY2011BE098859

PATIENT
  Sex: Female

DRUGS (13)
  1. PERDOLAN [Concomitant]
     Dosage: 500 MG, UNK
  2. FEMARA [Suspect]
     Indication: BREAST CANCER
     Dosage: 2.5 MG, DAILY
     Dates: start: 20110801
  3. RAMIPRIL [Concomitant]
  4. SIPRALEXA [Concomitant]
     Dosage: 10 MG, UNK
  5. METAMIZOLE SODIUM MONOHYDRATE [Concomitant]
     Dosage: 500 MG, UNK
  6. TASIGNA [Suspect]
     Indication: CHRONIC MYELOID LEUKAEMIA
     Dosage: 300 MG, DAILY
     Dates: start: 20110201
  7. HERCEPTIN [Suspect]
     Indication: BREAST CANCER
     Dosage: 120 MG, QW
     Route: 042
  8. PANTOPRAZOLE [Concomitant]
     Dosage: 20 MG, UNK
  9. SPIRIVA [Concomitant]
  10. ELTHYRONE [Concomitant]
     Dosage: 50 U, UNK
  11. LORAMET [Concomitant]
     Dosage: 2 MG, UNK
  12. LEXOTAN [Concomitant]
     Dosage: 6 MG, UNK
  13. DURAGESIC-100 [Concomitant]
     Dosage: 25 UG, UNK
     Dates: start: 20111114

REACTIONS (3)
  - BLOOD CREATININE INCREASED [None]
  - MYALGIA [None]
  - BLOOD LACTATE DEHYDROGENASE INCREASED [None]
